FAERS Safety Report 12874142 (Version 5)
Quarter: 2016Q4

REPORT INFORMATION
  Report Type: Spontaneous
  Country: JP (occurrence: JP)
  Receive Date: 20161021
  Receipt Date: 20161207
  Transmission Date: 20170207
  Serious: Yes (Hospitalization, Other)
  Sender: FDA-Public Use
  Company Number: JP-DSJP-DSJ-2016-135064

PATIENT

DRUGS (11)
  1. LANIRAPID [Suspect]
     Active Substance: METILDIGOXIN
     Dosage: 0.05 MG, QD
     Route: 048
     Dates: end: 20161004
  2. MAINTATE [Suspect]
     Active Substance: BISOPROLOL FUMARATE
     Dosage: 1.25 MG, QD
     Route: 048
     Dates: end: 20161004
  3. ZETIA [Suspect]
     Active Substance: EZETIMIBE
     Dosage: 10 MG, QD
     Route: 048
     Dates: end: 20161004
  4. LIXIANA TABLETS [Suspect]
     Active Substance: EDOXABAN TOSILATE MONOHYDRATE
     Dosage: 30 MG, QD
     Route: 048
     Dates: start: 20161007
  5. LUPRAC [Suspect]
     Active Substance: TORSEMIDE
     Dosage: 4 MG, QD
     Route: 048
     Dates: end: 20161004
  6. LIXIANA TABLETS [Suspect]
     Active Substance: EDOXABAN TOSILATE MONOHYDRATE
     Indication: ATRIAL FIBRILLATION
     Dosage: 30 MG/DAY
     Route: 048
     Dates: end: 20161004
  7. ACINON                             /00867001/ [Concomitant]
     Dosage: 150 MG, QD
     Route: 048
     Dates: end: 20161004
  8. MICARDIS [Suspect]
     Active Substance: TELMISARTAN
     Dosage: 40 MG, QD
     Route: 048
     Dates: end: 20161004
  9. MEMARY TABLETS 5MG [Concomitant]
     Active Substance: MEMANTINE HYDROCHLORIDE
     Indication: DEMENTIA ALZHEIMER^S TYPE
     Dosage: 5 MG, QD
     Route: 048
     Dates: end: 20161004
  10. BEZATOL [Concomitant]
     Active Substance: BEZAFIBRATE
     Dosage: 400 MG, UNK
     Route: 048
  11. LUPRAC [Suspect]
     Active Substance: TORSEMIDE
     Dosage: 4 MG, QD
     Route: 065
     Dates: start: 20161007

REACTIONS (3)
  - Overdose [Unknown]
  - Coagulation test abnormal [Recovered/Resolved]
  - Suicide attempt [Unknown]

NARRATIVE: CASE EVENT DATE: 20161004
